FAERS Safety Report 21194663 (Version 1)
Quarter: 2022Q3

REPORT INFORMATION
  Report Type: Spontaneous
  Country: US (occurrence: US)
  Receive Date: 20220810
  Receipt Date: 20220810
  Transmission Date: 20221026
  Serious: Yes (Other)
  Sender: FDA-Public Use
  Company Number: US-SUN PHARMACEUTICAL INDUSTRIES LTD-2022R1-348076

PATIENT
  Age: 23 Year
  Sex: Male

DRUGS (4)
  1. CARBOPLATIN [Suspect]
     Active Substance: CARBOPLATIN
     Indication: Chemotherapy
     Dosage: UNK
     Route: 065
  2. ETOPOSIDE [Suspect]
     Active Substance: ETOPOSIDE
     Indication: Chemotherapy
     Dosage: UNK
     Route: 065
  3. IFOSFAMIDE [Suspect]
     Active Substance: IFOSFAMIDE
     Indication: Chemotherapy
     Dosage: UNK
     Route: 065
  4. RITUXIMAB [Suspect]
     Active Substance: RITUXIMAB
     Indication: Chemotherapy
     Dosage: UNK
     Route: 065

REACTIONS (3)
  - Therapeutic product effect incomplete [Unknown]
  - Disease progression [Unknown]
  - Dizziness [Unknown]
